FAERS Safety Report 25494662 (Version 1)
Quarter: 2025Q2

REPORT INFORMATION
  Report Type: Report from Study
  Country: PK (occurrence: PK)
  Receive Date: 20250630
  Receipt Date: 20250630
  Transmission Date: 20250716
  Serious: Yes (Other)
  Sender: ROCHE
  Company Number: PK-ROCHE-10000323468

PATIENT
  Age: 54 Year

DRUGS (1)
  1. MABTHERA [Suspect]
     Active Substance: RITUXIMAB
     Indication: Diffuse large B-cell lymphoma
     Route: 058
     Dates: start: 20190722

REACTIONS (1)
  - Lymphoma transformation [Unknown]

NARRATIVE: CASE EVENT DATE: 20250618
